FAERS Safety Report 23563645 (Version 1)
Quarter: 2024Q1

REPORT INFORMATION
  Report Type: Report from Study
  Country: US (occurrence: US)
  Receive Date: 20240226
  Receipt Date: 20240226
  Transmission Date: 20240410
  Serious: Yes (Other)
  Sender: FDA-Public Use
  Company Number: US-SAMSUNG BIOEPIS-SB-2024-05658

PATIENT
  Age: 68 Year
  Sex: Female

DRUGS (1)
  1. RENFLEXIS [Suspect]
     Active Substance: INFLIXIMAB-ABDA
     Indication: Rheumatoid arthritis
     Dosage: UNKNOWN
     Route: 042

REACTIONS (2)
  - Cerebrovascular accident [Not Recovered/Not Resolved]
  - Pain [Not Recovered/Not Resolved]
